FAERS Safety Report 7431050-9 (Version None)
Quarter: 2011Q2

REPORT INFORMATION
  Report Type: 
  Country: None (occurrence: None)
  Receive Date: 20110421
  Receipt Date: 20110419
  Transmission Date: 20111010
  Serious: Yes (Hospitalization)
  Sender: FDA-Public Use
  Company Number: CEPHALON-2011001937

PATIENT
  Sex: Male
  Weight: 47 kg

DRUGS (9)
  1. SODIUM BICARBONATE [Concomitant]
     Dates: start: 20110105
  2. TOPIRAMATE [Concomitant]
     Dates: start: 20100905
  3. LEVETIRACETAM [Concomitant]
     Dates: start: 20091113, end: 20110327
  4. ALLOPURINOL [Concomitant]
     Dates: start: 20110413, end: 20110416
  5. FLUCONAZOLE [Concomitant]
     Dates: start: 20110103
  6. CHLORPHENAMINE [Concomitant]
     Dates: start: 20100109
  7. ALLOPURINOL [Concomitant]
     Dates: start: 20110210, end: 20110216
  8. COTRIM [Concomitant]
     Dates: start: 20091106
  9. TREANDA [Suspect]
     Indication: ACUTE LEUKAEMIA
     Route: 042
     Dates: start: 20110214, end: 20110321

REACTIONS (1)
  - ASPERGILLOSIS [None]
